FAERS Safety Report 16304383 (Version 1)
Quarter: 2019Q2

REPORT INFORMATION
  Report Type: Report from Study
  Country: None (occurrence: FR)
  Receive Date: 20190513
  Receipt Date: 20190513
  Transmission Date: 20190711
  Serious: Yes (Death, Congenital Anomaly)
  Sender: FDA-Public Use
  Company Number: FR-ABBVIE-19S-056-2776233-00

PATIENT

DRUGS (6)
  1. LOPINAVIR/RITONAVIR [Suspect]
     Active Substance: LOPINAVIR\RITONAVIR
     Indication: MATERNAL EXPOSURE TIMING UNSPECIFIED
     Route: 064
  2. DIDANOSINE. [Suspect]
     Active Substance: DIDANOSINE
     Indication: MATERNAL EXPOSURE TIMING UNSPECIFIED
     Route: 064
  3. NEVIRAPINE. [Suspect]
     Active Substance: NEVIRAPINE
     Indication: MATERNAL EXPOSURE TIMING UNSPECIFIED
     Route: 064
  4. LAMIVUDINE AND ZIDOVUDINE [Suspect]
     Active Substance: LAMIVUDINE\ZIDOVUDINE
     Indication: MATERNAL EXPOSURE TIMING UNSPECIFIED
     Route: 064
  5. EMTRICITABINE [Suspect]
     Active Substance: EMTRICITABINE
     Indication: MATERNAL EXPOSURE TIMING UNSPECIFIED
     Route: 064
  6. EFAVIRENZ. [Suspect]
     Active Substance: EFAVIRENZ
     Indication: MATERNAL EXPOSURE TIMING UNSPECIFIED
     Route: 064

REACTIONS (3)
  - Brain herniation [Fatal]
  - Spina bifida [Fatal]
  - Foetal exposure during pregnancy [Unknown]
